FAERS Safety Report 9419709 (Version 1)
Quarter: 2013Q3

REPORT INFORMATION
  Report Type: Spontaneous
  Country: AU (occurrence: AU)
  Receive Date: 20130725
  Receipt Date: 20130725
  Transmission Date: 20140515
  Serious: Yes (Other)
  Sender: FDA-Public Use
  Company Number: AU-PFIZER INC-2013179687

PATIENT
  Sex: Female

DRUGS (1)
  1. XALATAN [Suspect]
     Indication: GLAUCOMA
     Dosage: 1 DF (AT NIGHT), 1X/DAY
     Route: 061

REACTIONS (4)
  - Ocular surface disease [Unknown]
  - Visual acuity reduced [Unknown]
  - Vision blurred [Unknown]
  - Dry eye [Unknown]
